FAERS Safety Report 7567894-2 (Version None)
Quarter: 2011Q2

REPORT INFORMATION
  Report Type: 
  Country: None (occurrence: None)
  Receive Date: 20110616
  Receipt Date: 20110606
  Transmission Date: 20111010
  Serious: Yes (Other)
  Sender: FDA-Public Use
  Company Number: LEO-2011-00438

PATIENT
  Age: 75 Year
  Sex: Female
  Weight: 52 kg

DRUGS (1)
  1. INNOHEP [Suspect]
     Indication: JOINT PROSTHESIS USER
     Dosage: 0.45 ML (1 IN 1 D),SUBCUTANEOUS
     Route: 058
     Dates: start: 20110424, end: 20110505

REACTIONS (2)
  - INDURATION [None]
  - ECCHYMOSIS [None]
